FAERS Safety Report 8477926-5 (Version None)
Quarter: 2012Q2

REPORT INFORMATION
  Report Type: 
  Country: None (occurrence: None)
  Receive Date: 20120629
  Receipt Date: 20120622
  Transmission Date: 20120825
  Serious: Yes (Other)
  Sender: FDA-Public Use
  Company Number: CA-PFIZER INC-2012154596

PATIENT
  Sex: Male

DRUGS (3)
  1. METFORMIN [Concomitant]
     Dosage: UNK
  2. AMLODIPINE BESYLATE [Suspect]
     Dosage: UNK
  3. BISOPROLOL [Concomitant]
     Dosage: UNK

REACTIONS (2)
  - ANGINA PECTORIS [None]
  - DRUG DOSE OMISSION [None]
